FAERS Safety Report 18102326 (Version 2)
Quarter: 2020Q3

REPORT INFORMATION
  Report Type: Report from Study
  Country: None (occurrence: US)
  Receive Date: 20200803
  Receipt Date: 20200921
  Transmission Date: 20201103
  Serious: Yes (Hospitalization, Other)
  Sender: FDA-Public Use
  Company Number: US-ABBVIE-20K-163-3508188-00

PATIENT
  Age: 11 Year
  Sex: Male
  Weight: 31.33 kg

DRUGS (3)
  1. LUPRON DEPOT?PED [Suspect]
     Active Substance: LEUPROLIDE ACETATE
     Indication: PRECOCIOUS PUBERTY
     Route: 030
     Dates: start: 20200722
  2. METHYLPHENIDATE. [Concomitant]
     Active Substance: METHYLPHENIDATE
     Indication: ATTENTION DEFICIT HYPERACTIVITY DISORDER
  3. ZOMACTON [Concomitant]
     Active Substance: SOMATROPIN
     Indication: BLOOD GROWTH HORMONE

REACTIONS (3)
  - Orchitis noninfective [Recovering/Resolving]
  - Penile swelling [Recovered/Resolved]
  - Penile erythema [Unknown]

NARRATIVE: CASE EVENT DATE: 2020
